FAERS Safety Report 6291525-5 (Version None)
Quarter: 2009Q3

REPORT INFORMATION
  Report Type: 
  Country: None (occurrence: None)
  Receive Date: 20090730
  Receipt Date: 20090730
  Transmission Date: 20100115
  Serious: Yes (Other)
  Sender: FDA-Public Use
  Company Number: None

PATIENT
  Age: 36 Year
  Sex: Female
  Weight: 46 kg

DRUGS (1)
  1. BOTOX [Suspect]
     Dosage: 10 UNITS ONCE SQ
     Route: 058
     Dates: start: 20090710, end: 20090710

REACTIONS (24)
  - ABDOMINAL DISCOMFORT [None]
  - ABNORMAL SENSATION IN EYE [None]
  - CONFUSIONAL STATE [None]
  - DEPRESSION [None]
  - DISORIENTATION [None]
  - DISTURBANCE IN ATTENTION [None]
  - DIZZINESS [None]
  - DRUG INTERACTION [None]
  - DRY EYE [None]
  - DRY THROAT [None]
  - FEELING ABNORMAL [None]
  - FEELING OF DESPAIR [None]
  - INFLUENZA LIKE ILLNESS [None]
  - INJECTION SITE PRURITUS [None]
  - INSOMNIA [None]
  - NIGHT SWEATS [None]
  - OPHTHALMOPLEGIA [None]
  - PAIN [None]
  - PANIC ATTACK [None]
  - PARALYSIS [None]
  - SOMNOLENCE [None]
  - SWELLING FACE [None]
  - THINKING ABNORMAL [None]
  - VOMITING [None]
